FAERS Safety Report 5186662-2 (Version None)
Quarter: 2006Q4

REPORT INFORMATION
  Report Type: 
  Country: None (occurrence: None)
  Receive Date: 20061213
  Receipt Date: 20061204
  Transmission Date: 20070319
  Serious: Yes (Hospitalization)
  Sender: FDA-Public Use
  Company Number: 2006PV023243

PATIENT
  Age: 52 Year
  Sex: Female
  Weight: 83.4619 kg

DRUGS (4)
  1. BYETTA [Suspect]
     Indication: DIABETES MELLITUS NON-INSULIN-DEPENDENT
     Dosage: 10 MCG; BID; SC;  5 MCG; BID SC
     Route: 058
     Dates: start: 20060601, end: 20060701
  2. BYETTA [Suspect]
     Indication: DIABETES MELLITUS NON-INSULIN-DEPENDENT
     Dosage: 10 MCG; BID; SC;  5 MCG; BID SC
     Route: 058
     Dates: start: 20060701
  3. AMARYL [Concomitant]
  4. GLUCOPHAGE [Concomitant]

REACTIONS (10)
  - ALBUMIN URINE PRESENT [None]
  - BLOOD GLUCOSE INCREASED [None]
  - BURNING SENSATION [None]
  - DECREASED APPETITE [None]
  - FATIGUE [None]
  - HYPOGLYCAEMIA [None]
  - INJECTION SITE IRRITATION [None]
  - LIPIDS INCREASED [None]
  - NEPHROLITHIASIS [None]
  - WEIGHT DECREASED [None]
